FAERS Safety Report 9958781 (Version 1)
Quarter: 2014Q1

REPORT INFORMATION
  Report Type: Spontaneous
  Country: AU (occurrence: None)
  Receive Date: 20140228
  Receipt Date: 20140228
  Transmission Date: 20141002
  Serious: Yes (Hospitalization, Other)
  Sender: FDA-Public Use
  Company Number: AUR-APL-2014-01936

PATIENT
  Age: 52 Year
  Sex: Female

DRUGS (5)
  1. QUETIAPINE (QUETIAPINE) [Suspect]
     Indication: PRODUCT USED FOR UNKNOWN INDICATION
     Route: 048
     Dates: end: 20120916
  2. MIRTAZAPINE (MIRTAZAPINE) [Suspect]
     Route: 048
  3. CHLORPROMAZINE HYDROCHLORIDE [Suspect]
     Indication: PRODUCT USED FOR UNKNOWN INDICATION
     Route: 048
     Dates: end: 20120916
  4. DIAZEPAM (DIAZEPAM) [Concomitant]
     Indication: PRODUCT USED FOR UNKNOWN INDICATION
     Route: 048
  5. METHADONE HYDROCHLORIDE [Suspect]
     Indication: PRODUCT USED FOR UNKNOWN INDICATION
     Route: 048
     Dates: end: 20120916

REACTIONS (2)
  - Cardiac arrest [None]
  - Electrocardiogram QT prolonged [None]
